FAERS Safety Report 6554036-5 (Version None)
Quarter: 2010Q1

REPORT INFORMATION
  Report Type: 
  Country: None (occurrence: None)
  Receive Date: 20100125
  Receipt Date: 20100125
  Transmission Date: 20100710
  Serious: No
  Sender: FDA-Public Use
  Company Number: None

PATIENT
  Age: 77 Year
  Sex: Male

DRUGS (1)
  1. DORZOLAMIDE HYDROCHLORIDE/TIMOLOL MALEATE [Suspect]
     Indication: GLAUCOMA
     Dosage: 1 GTT BID OPTHALMIC
     Route: 047
     Dates: start: 20090402, end: 20090526

REACTIONS (2)
  - IRRITABILITY [None]
  - PRODUCT SUBSTITUTION ISSUE [None]
